FAERS Safety Report 9752995 (Version 1)
Quarter: 2013Q4

REPORT INFORMATION
  Report Type: Spontaneous
  Country: FR (occurrence: FR)
  Receive Date: 20131213
  Receipt Date: 20131213
  Transmission Date: 20140711
  Serious: Yes (Hospitalization)
  Sender: FDA-Public Use
  Company Number: FR-PFIZER INC-2013351776

PATIENT
  Age: 84 Year
  Sex: Female

DRUGS (10)
  1. ALDACTONE [Suspect]
     Dosage: 50 MG, 1X/DAY
     Route: 048
  2. SINTROM [Interacting]
     Dosage: 4 MG, 1X/DAY
     Route: 048
     Dates: start: 20131103, end: 20131109
  3. SINTROM [Interacting]
     Dosage: 4 MG, SINGLE
     Route: 048
     Dates: start: 20131111, end: 20131111
  4. COLCHICINE OPOCALCIUM [Interacting]
     Indication: CRYSTAL ARTHROPATHY
     Dosage: 1 MG, 1X/DAY
     Route: 048
     Dates: start: 20131102, end: 20131112
  5. DIGOXIN [Concomitant]
     Dosage: 0.25 MG, 1X/DAY
     Route: 048
  6. LASILIX [Concomitant]
     Dosage: 250 MG, DAILY
     Route: 048
  7. TILDIEM [Concomitant]
     Dosage: 60 MG, 2X/DAY
     Route: 048
  8. ZESTRIL [Concomitant]
     Dosage: 5 MG, DAILY
     Route: 048
  9. TRINIPATCH [Concomitant]
     Dosage: 5 MG, DAILY
     Route: 062
  10. TRANSIPEG [Concomitant]
     Dosage: 5.9 G, UNK

REACTIONS (3)
  - Haematoma [Recovered/Resolved]
  - Anaemia [Recovered/Resolved]
  - Drug interaction [Recovered/Resolved]
